FAERS Safety Report 15779659 (Version 2)
Quarter: 2024Q4

REPORT INFORMATION
  Report Type: Spontaneous
  Country: JP (occurrence: JP)
  Receive Date: 20190101
  Receipt Date: 20241111
  Transmission Date: 20250115
  Serious: Yes (Hospitalization, Other)
  Sender: ALKEM
  Company Number: None

PATIENT
  Age: 54 Year
  Sex: Male

DRUGS (3)
  1. MYCOPHENOLATE MOFETIL [Suspect]
     Active Substance: MYCOPHENOLATE MOFETIL
     Indication: Product used for unknown indication
     Dosage: 1 G, QD (EVERY 1 DAY)
     Route: 065
  2. TACROLIMUS [Suspect]
     Active Substance: TACROLIMUS
     Indication: Product used for unknown indication
     Dosage: 3 MG, QD (EVERY 1 DAY)
     Route: 065
  3. METHYLPREDNISOLONE [Suspect]
     Active Substance: METHYLPREDNISOLONE
     Indication: Product used for unknown indication
     Dosage: 4 MG, QD (EVERY 1 DAY)
     Route: 065

REACTIONS (3)
  - Gastrointestinal toxicity [Recovered/Resolved]
  - Ileal ulcer [Recovered/Resolved]
  - Cytomegalovirus infection [Recovering/Resolving]
